FAERS Safety Report 16931008 (Version 2)
Quarter: 2020Q4

REPORT INFORMATION
  Report Type: Spontaneous
  Country: CH (occurrence: CH)
  Receive Date: 20191017
  Receipt Date: 20201103
  Transmission Date: 20210113
  Serious: Yes (Other)
  Sender: FDA-Public Use
  Company Number: CH-009507513-1910CHE009088

PATIENT
  Age: 57 Year
  Sex: Female

DRUGS (1)
  1. PEMBROLIZUMAB. [Suspect]
     Active Substance: PEMBROLIZUMAB
     Indication: MALIGNANT MELANOMA
     Dosage: 200 MILLIGRAM, Q3W
     Route: 042
     Dates: start: 201711, end: 201807

REACTIONS (1)
  - Immune-mediated arthritis [Recovered/Resolved]

NARRATIVE: CASE EVENT DATE: 201803
